FAERS Safety Report 8346228-X (Version None)
Quarter: 2012Q2

REPORT INFORMATION
  Report Type: 
  Country: None (occurrence: None)
  Receive Date: 20120507
  Receipt Date: 20120426
  Transmission Date: 20120825
  Serious: Yes (Hospitalization)
  Sender: FDA-Public Use
  Company Number: 2012-1917

PATIENT
  Age: 68 Year
  Sex: Female

DRUGS (10)
  1. CELEBREX [Concomitant]
  2. ESTRADERM [Concomitant]
  3. DIOVAN [Concomitant]
  4. MEDROXYPROGESTERONE [Concomitant]
  5. HYDROCORTONE [Concomitant]
  6. HYDROCHLOROTHIAZIDE [Concomitant]
  7. SOMATULINE DEPOT [Suspect]
     Indication: ACROMEGALY
     Dosage: 90 MG (90 MG,1 IN 28 D),SUBCUTANEOUS
     Route: 058
     Dates: start: 20110929
  8. TOPROL-XL [Concomitant]
  9. NEXIUM [Concomitant]
  10. VITAMINS (VITAMINS NOS) [Concomitant]

REACTIONS (3)
  - LARYNGITIS [None]
  - SUTURE REMOVAL [None]
  - MALAISE [None]
